FAERS Safety Report 7512151-3 (Version None)
Quarter: 2011Q2

REPORT INFORMATION
  Report Type: 
  Country: None (occurrence: None)
  Receive Date: 20110520
  Receipt Date: 20110517
  Transmission Date: 20111010
  Serious: Yes (Hospitalization, Other)
  Sender: FDA-Public Use
  Company Number: SP03572

PATIENT
  Age: 74 Year
  Sex: Male

DRUGS (4)
  1. GLUCAGON [Concomitant]
  2. MEPERIDINE HCL [Concomitant]
  3. OLMESARTAN MEDOXOMIL (TABLETS) [Concomitant]
  4. VISICOL [Suspect]
     Indication: BOWEL PREPARATION
     Dosage: 50 GM, ORAL
     Route: 048
     Dates: start: 20110314, end: 20110314

REACTIONS (9)
  - DEHYDRATION [None]
  - BLOOD CALCIUM DECREASED [None]
  - HAEMODIALYSIS [None]
  - NEPHROCALCINOSIS [None]
  - HEART RATE INCREASED [None]
  - BLOOD PHOSPHORUS INCREASED [None]
  - RENAL FAILURE ACUTE [None]
  - HYPOTENSION [None]
  - ELECTROCARDIOGRAM QT PROLONGED [None]
